FAERS Safety Report 16690125 (Version 3)
Quarter: 2019Q3

REPORT INFORMATION
  Report Type: Report from Study
  Country: US (occurrence: US)
  Receive Date: 20190809
  Receipt Date: 20190927
  Transmission Date: 20191004
  Serious: Yes (Other)
  Sender: FDA-Public Use
  Company Number: PHEH2019US032810

PATIENT
  Age: 55 Year
  Sex: Female
  Weight: 112 kg

DRUGS (2)
  1. METHOTREXATE. [Suspect]
     Active Substance: METHOTREXATE
     Indication: PRODUCT USED FOR UNKNOWN INDICATION
     Dosage: UNK
     Route: 065
  2. COSENTYX [Suspect]
     Active Substance: SECUKINUMAB
     Indication: RHEUMATOID ARTHRITIS
     Dosage: 300 MG, UNK
     Route: 065
     Dates: start: 20190311

REACTIONS (6)
  - Product prescribing error [Unknown]
  - Oropharyngeal pain [Recovered/Resolved]
  - Product storage error [Unknown]
  - Poor quality device used [Unknown]
  - Product use in unapproved indication [Unknown]
  - Pyrexia [Recovered/Resolved]

NARRATIVE: CASE EVENT DATE: 20190705
